FAERS Safety Report 16727511 (Version 2)
Quarter: 2019Q3

REPORT INFORMATION
  Report Type: Report from Study
  Country: None (occurrence: SE)
  Receive Date: 20190822
  Receipt Date: 20190910
  Transmission Date: 20191005
  Serious: Yes (Death)
  Sender: FDA-Public Use
  Company Number: SE-ABBVIE-19K-150-2896623-00

PATIENT
  Age: 78 Year
  Sex: Male
  Weight: 71 kg

DRUGS (2)
  1. DUODOPA [Suspect]
     Active Substance: CARBIDOPA\LEVODOPA
     Indication: PARKINSON^S DISEASE
     Route: 050
     Dates: start: 20121105
  2. DUODOPA [Suspect]
     Active Substance: CARBIDOPA\LEVODOPA
     Route: 050
     Dates: start: 20121112

REACTIONS (8)
  - Pneumonia [Fatal]
  - Volvulus of small bowel [Unknown]
  - Lower respiratory tract infection fungal [Unknown]
  - Respiratory tract infection bacterial [Unknown]
  - Anxiety [Unknown]
  - Orthostatic intolerance [Not Recovered/Not Resolved]
  - Cognitive disorder [Not Recovered/Not Resolved]
  - Pain [Unknown]

NARRATIVE: CASE EVENT DATE: 20190619
